FAERS Safety Report 7225610-8 (Version None)
Quarter: 2011Q1

REPORT INFORMATION
  Report Type: 
  Country: None (occurrence: None)
  Receive Date: 20110113
  Receipt Date: 20110107
  Transmission Date: 20110831
  Serious: Yes (Disabling)
  Sender: FDA-Public Use
  Company Number: DK-DENTSPLY-2010-0105-EUR

PATIENT
  Sex: Female

DRUGS (3)
  1. XYLOCAINE [Suspect]
     Dates: start: 20080407, end: 20080407
  2. DIOVAN [Interacting]
     Dates: start: 20050525
  3. AMLODIPINE [Concomitant]

REACTIONS (20)
  - BRAIN OEDEMA [None]
  - DIPLOPIA [None]
  - DRUG INTERACTION [None]
  - CENTRAL NERVOUS SYSTEM LESION [None]
  - PALPITATIONS [None]
  - PHOTOPHOBIA [None]
  - HEART RATE DECREASED [None]
  - DIZZINESS [None]
  - HEART RATE INCREASED [None]
  - DYSPNOEA [None]
  - HEADACHE [None]
  - TINNITUS [None]
  - FEELING HOT [None]
  - DEPRESSED LEVEL OF CONSCIOUSNESS [None]
  - SOMNOLENCE [None]
  - PAIN IN EXTREMITY [None]
  - BRAIN STEM SYNDROME [None]
  - APHASIA [None]
  - VISUAL ACUITY REDUCED [None]
  - HEART RATE IRREGULAR [None]
